FAERS Safety Report 11751503 (Version 4)
Quarter: 2016Q3

REPORT INFORMATION
  Report Type: Spontaneous
  Country: US (occurrence: US)
  Receive Date: 20151118
  Receipt Date: 20160916
  Transmission Date: 20161109
  Serious: Yes (Death, Congenital Anomaly, Other)
  Sender: FDA-Public Use
  Company Number: PHEH2015US023997

PATIENT
  Age: 0 Day
  Sex: Female

DRUGS (4)
  1. ONDANSETRONE TEVA [Suspect]
     Active Substance: ONDANSETRON HYDROCHLORIDE
     Indication: FOETAL EXPOSURE DURING PREGNANCY
     Dosage: MOTHERS DOSE: 2 TABLETS EVERY 4 HOURS
     Route: 064
  2. ONDANSETRON. [Suspect]
     Active Substance: ONDANSETRON
     Indication: FOETAL EXPOSURE DURING PREGNANCY
     Route: 064
  3. ZOFRAN [Suspect]
     Active Substance: ONDANSETRON HYDROCHLORIDE
     Indication: FOETAL EXPOSURE DURING PREGNANCY
     Dosage: MOTHERS DOSE: 1 TO 2 TABLETS, Q4H
     Route: 064
  4. ONDANSETRON HYDROCHLORIDE. [Suspect]
     Active Substance: ONDANSETRON HYDROCHLORIDE
     Indication: FOETAL EXPOSURE DURING PREGNANCY
     Route: 064

REACTIONS (20)
  - Ebstein^s anomaly [Unknown]
  - Deformity [Unknown]
  - Pancreatic islets hyperplasia [Unknown]
  - Cardiopulmonary failure [Fatal]
  - Atrial septal defect [Unknown]
  - Right ventricular dysfunction [Unknown]
  - Injury [Unknown]
  - Congenital anomaly [Unknown]
  - Heart disease congenital [Unknown]
  - Left ventricular dysfunction [Unknown]
  - Laevocardia [Unknown]
  - Pulmonary hypoplasia [Unknown]
  - Cardiomegaly [Unknown]
  - Left ventricular hypertrophy [Unknown]
  - Ventricular septal defect [Unknown]
  - Right ventricular hypertrophy [Unknown]
  - Emotional distress [Unknown]
  - Tricuspid valve disease [Unknown]
  - Foetal exposure during pregnancy [Unknown]
  - Pleural effusion [Unknown]

NARRATIVE: CASE EVENT DATE: 20131116
